FAERS Safety Report 9061348 (Version 1)
Quarter: 2013Q1

REPORT INFORMATION
  Report Type: Spontaneous
  Country: US (occurrence: None)
  Receive Date: 20130208
  Receipt Date: 20130208
  Transmission Date: 20140127
  Serious: No
  Sender: FDA-Public Use
  Company Number: None

PATIENT
  Age: 50 Year
  Sex: Female
  Weight: 65.77 kg

DRUGS (1)
  1. CYMBALTA 30 MG LILLY [Suspect]
     Route: 048
     Dates: start: 20130125, end: 20130126

REACTIONS (6)
  - Nausea [None]
  - Hypophagia [None]
  - Headache [None]
  - Fatigue [None]
  - Insomnia [None]
  - Morbid thoughts [None]
